FAERS Safety Report 6754111-6 (Version None)
Quarter: 2010Q2

REPORT INFORMATION
  Report Type: 
  Country: None (occurrence: None)
  Receive Date: 20100527
  Receipt Date: 20100521
  Transmission Date: 20101027
  Serious: Yes (Life-Threatening, Other)
  Sender: FDA-Public Use
  Company Number: 2010SP024563

PATIENT
  Age: 28 Year
  Sex: Male

DRUGS (9)
  1. SAPHRIS [Suspect]
     Indication: ANXIETY
     Dosage: 2.5 MG;HS
     Dates: start: 20100415, end: 20100417
  2. SAPHRIS [Suspect]
     Indication: MAJOR DEPRESSION
     Dosage: 2.5 MG;HS
     Dates: start: 20100415, end: 20100417
  3. CLONAZEPAM [Concomitant]
  4. LAMOTRIGINE [Concomitant]
  5. LEXAPRO [Concomitant]
  6. BUSPIRONE HCL [Concomitant]
  7. T4 [Concomitant]
  8. DEPLIN [Concomitant]
  9. CRESTOR [Concomitant]

REACTIONS (1)
  - ANAPHYLACTIC REACTION [None]
